FAERS Safety Report 21986968 (Version 1)
Quarter: 2023Q1

REPORT INFORMATION
  Report Type: Spontaneous
  Country: JP (occurrence: JP)
  Receive Date: 20230213
  Receipt Date: 20230213
  Transmission Date: 20230417
  Serious: Yes (Hospitalization, Other)
  Sender: FDA-Public Use
  Company Number: JP-002147023-NVSJ2023JP002745

PATIENT
  Sex: Female

DRUGS (1)
  1. EXELON PATCH [Suspect]
     Active Substance: RIVASTIGMINE
     Indication: Musculoskeletal stiffness
     Dosage: 18MG: PATCH10(CM2), 4 PATCHES 4
     Route: 062

REACTIONS (5)
  - Physical deconditioning [Recovered/Resolved]
  - Nausea [Recovered/Resolved]
  - Intentional product misuse [Unknown]
  - Intentional overdose [Unknown]
  - Product administration error [Unknown]
